FAERS Safety Report 4522378-0 (Version None)
Quarter: 2004Q4

REPORT INFORMATION
  Report Type: 
  Country: None (occurrence: None)
  Receive Date: 20041209
  Receipt Date: 20041203
  Transmission Date: 20050328
  Serious: Yes (Hospitalization)
  Sender: FDA-Public Use
  Company Number: IT-GLAXOSMITHKLINE-B0359344A

PATIENT
  Age: 89 Year
  Sex: Female

DRUGS (7)
  1. ZOVIRAX [Suspect]
     Indication: HERPES ZOSTER
     Route: 048
     Dates: start: 20041104, end: 20041109
  2. ASPIRIN [Concomitant]
     Route: 048
  3. ZIRTEC [Concomitant]
     Route: 065
  4. NITROGLYCERIN [Concomitant]
     Route: 062
  5. MINITRAN [Concomitant]
     Route: 030
  6. SODIUM PANTOTHENATE [Concomitant]
     Route: 048
  7. TORADOL [Concomitant]
     Route: 030

REACTIONS (2)
  - DISORIENTATION [None]
  - SPEECH DISORDER [None]
